FAERS Safety Report 21970445 (Version 1)
Quarter: 2023Q1

REPORT INFORMATION
  Report Type: Spontaneous
  Country: GB (occurrence: GB)
  Receive Date: 20230209
  Receipt Date: 20230209
  Transmission Date: 20230417
  Serious: Yes (Other)
  Sender: FDA-Public Use
  Company Number: None

PATIENT
  Age: 59 Year
  Sex: Male
  Weight: 90 kg

DRUGS (5)
  1. NORDITROPIN [Suspect]
     Active Substance: SOMATROPIN
     Indication: Product used for unknown indication
     Dosage: UNK
     Dates: start: 20220705
  2. HYDROCORTISTAB [Concomitant]
     Indication: Pituitary tumour
     Dosage: UNK
     Dates: start: 20200501
  3. LEVOTHYROXINE [Concomitant]
     Active Substance: LEVOTHYROXINE
     Indication: Pituitary tumour
     Dosage: UNK
     Dates: start: 20200501
  4. DESMOPRESSIN ACETATE [Concomitant]
     Active Substance: DESMOPRESSIN ACETATE
     Indication: Pituitary tumour
     Dosage: UNK
     Dates: start: 20200501
  5. TESTOSTERONE [Concomitant]
     Active Substance: TESTOSTERONE
     Indication: Pituitary tumour
     Dosage: UNK
     Dates: start: 20200501

REACTIONS (2)
  - Neck pain [Not Recovered/Not Resolved]
  - Arthralgia [Not Recovered/Not Resolved]
